FAERS Safety Report 14368422 (Version 1)
Quarter: 2018Q1

REPORT INFORMATION
  Report Type: Spontaneous
  Country: CN (occurrence: CN)
  Receive Date: 20180109
  Receipt Date: 20180109
  Transmission Date: 20180509
  Serious: Yes (Hospitalization)
  Sender: FDA-Public Use
  Company Number: CN-PURDUE PHARMA-GBR-2017-0051892

PATIENT
  Age: 76 Year
  Sex: Female
  Weight: 52 kg

DRUGS (1)
  1. MS CONTIN [Suspect]
     Active Substance: MORPHINE SULFATE
     Indication: TUMOUR PAIN
     Dosage: 30 MG, DAILY
     Route: 048
     Dates: start: 20171105, end: 20171105

REACTIONS (5)
  - Vomiting [Recovering/Resolving]
  - Dizziness [Recovering/Resolving]
  - Anaphylactoid reaction [Recovering/Resolving]
  - Palpitations [Recovering/Resolving]
  - Nausea [Recovering/Resolving]

NARRATIVE: CASE EVENT DATE: 20171105
